FAERS Safety Report 11127673 (Version 1)
Quarter: 2015Q2

REPORT INFORMATION
  Report Type: Spontaneous
  Country: US (occurrence: US)
  Receive Date: 20150521
  Receipt Date: 20150521
  Transmission Date: 20150821
  Serious: No
  Sender: FDA-Public Use
  Company Number: US-MYLANLABS-2015M1009095

PATIENT
  Sex: Female

DRUGS (1)
  1. GLIPIZIDE AND METFORMIN HYDROCHLORIDE [Suspect]
     Active Substance: GLIPIZIDE\METFORMIN HYDROCHLORIDE
     Dosage: 5/500 MG, UNK
     Route: 048

REACTIONS (1)
  - Bladder discomfort [Recovered/Resolved]
